FAERS Safety Report 8127402-4 (Version None)
Quarter: 2012Q1

REPORT INFORMATION
  Report Type: 
  Country: None (occurrence: None)
  Receive Date: 20120210
  Receipt Date: 20120131
  Transmission Date: 20120608
  Serious: Yes (Hospitalization)
  Sender: FDA-Public Use
  Company Number: FR-JNJFOC-20120204378

PATIENT
  Sex: Female

DRUGS (7)
  1. ACETAMINOPHEN AND TRAMADOL HCL [Suspect]
     Route: 048
     Dates: start: 20111209, end: 20120105
  2. PREDNISONE TAB [Concomitant]
     Indication: INTERVERTEBRAL DISC PROTRUSION
     Route: 065
     Dates: start: 20111209, end: 20111213
  3. PREDNISONE TAB [Concomitant]
     Route: 065
     Dates: start: 20111219, end: 20111223
  4. ACETAMINOPHEN AND TRAMADOL HCL [Suspect]
     Indication: PAIN
     Route: 048
     Dates: start: 20120106, end: 20120107
  5. VOLTAREN [Concomitant]
     Indication: INTERVERTEBRAL DISC PROTRUSION
     Route: 065
     Dates: start: 20111224
  6. PREDNISONE TAB [Concomitant]
     Route: 065
     Dates: start: 20111214, end: 20111218
  7. ACETAMINOPHEN [Concomitant]
     Indication: INTERVERTEBRAL DISC PROTRUSION
     Route: 065
     Dates: start: 20111209, end: 20120106

REACTIONS (5)
  - SYNCOPE [None]
  - VOMITING [None]
  - DIZZINESS [None]
  - MUSCULAR WEAKNESS [None]
  - HYPERTENSION [None]
